FAERS Safety Report 6241796-6 (Version None)
Quarter: 2009Q2

REPORT INFORMATION
  Report Type: 
  Country: None (occurrence: None)
  Receive Date: 20090623
  Receipt Date: 20090612
  Transmission Date: 20091009
  Serious: Yes (Hospitalization)
  Sender: FDA-Public Use
  Company Number: FR-MYLANLABS-2009S1010659

PATIENT
  Sex: Female

DRUGS (3)
  1. CYSTAGON [Suspect]
     Indication: CYSTINOSIS
     Route: 048
     Dates: end: 20090501
  2. CYSTAGON [Suspect]
     Route: 048
     Dates: start: 20090501, end: 20090601
  3. CYSTAGON [Suspect]
     Route: 048
     Dates: start: 20090601

REACTIONS (1)
  - CHEST PAIN [None]
